FAERS Safety Report 19126925 (Version 1)
Quarter: 2021Q2

REPORT INFORMATION
  Report Type: Spontaneous
  Country: US (occurrence: US)
  Receive Date: 20210413
  Receipt Date: 20210413
  Transmission Date: 20210717
  Serious: No
  Sender: FDA-Public Use
  Company Number: US-ALLERGAN-2021768US

PATIENT
  Sex: Female

DRUGS (2)
  1. LATISSE [Suspect]
     Active Substance: BIMATOPROST
     Indication: GROWTH OF EYELASHES
     Dosage: UNK UNK, DAYTIME
     Dates: start: 201901
  2. LATISSE [Suspect]
     Active Substance: BIMATOPROST
     Dosage: UNK UNK, QPM
     Route: 065
     Dates: start: 2018, end: 2018

REACTIONS (5)
  - Surgery [Unknown]
  - Inappropriate schedule of product administration [Unknown]
  - Intraocular pressure increased [Unknown]
  - Dark circles under eyes [Recovered/Resolved]
  - Macular hole [Unknown]
